FAERS Safety Report 24602081 (Version 2)
Quarter: 2024Q4

REPORT INFORMATION
  Report Type: Spontaneous
  Country: CA (occurrence: CA)
  Receive Date: 20241111
  Receipt Date: 20241128
  Transmission Date: 20250115
  Serious: Yes (Other)
  Sender: ROCHE
  Company Number: CA-ROCHE-10000127222

PATIENT
  Age: 61 Year
  Sex: Female

DRUGS (22)
  1. RITUXIMAB [Suspect]
     Active Substance: RITUXIMAB
     Indication: Sarcoidosis
     Route: 042
  2. RITUXIMAB [Suspect]
     Active Substance: RITUXIMAB
     Indication: Myocardial ischaemia
     Route: 042
  3. RITUXIMAB [Suspect]
     Active Substance: RITUXIMAB
     Route: 042
  4. RITUXIMAB [Suspect]
     Active Substance: RITUXIMAB
     Route: 042
  5. RITUXIMAB [Suspect]
     Active Substance: RITUXIMAB
     Route: 042
  6. RITUXIMAB [Suspect]
     Active Substance: RITUXIMAB
     Route: 042
  7. RITUXIMAB [Suspect]
     Active Substance: RITUXIMAB
     Route: 042
  8. RITUXIMAB [Suspect]
     Active Substance: RITUXIMAB
     Route: 042
  9. RITUXIMAB [Suspect]
     Active Substance: RITUXIMAB
     Route: 042
  10. RITUXIMAB [Suspect]
     Active Substance: RITUXIMAB
     Route: 042
  11. RITUXIMAB [Suspect]
     Active Substance: RITUXIMAB
     Route: 042
  12. RITUXIMAB [Suspect]
     Active Substance: RITUXIMAB
     Route: 042
  13. RITUXIMAB [Suspect]
     Active Substance: RITUXIMAB
     Route: 042
  14. RITUXIMAB [Suspect]
     Active Substance: RITUXIMAB
     Route: 042
  15. ACETAMINOPHEN [Concomitant]
     Active Substance: ACETAMINOPHEN
     Route: 048
  16. AMIODARONE [Concomitant]
     Active Substance: AMIODARONE
     Indication: Product used for unknown indication
     Route: 048
  17. DIPHENHYDRAMINE HYDROCHLORIDE [Concomitant]
     Active Substance: DIPHENHYDRAMINE HYDROCHLORIDE
     Indication: Product used for unknown indication
     Route: 048
  18. METHOTREXATE [Concomitant]
     Active Substance: METHOTREXATE
     Route: 048
  19. METHYLPREDNISOLONE [Concomitant]
     Active Substance: METHYLPREDNISOLONE
     Indication: Product used for unknown indication
     Route: 048
  20. PREDNISOLONE [Concomitant]
     Active Substance: PREDNISOLONE
     Indication: Product used for unknown indication
     Route: 048
  21. RITUXAN [Concomitant]
     Active Substance: RITUXIMAB
     Indication: Product used for unknown indication
     Dosage: SOLUTION INTRAVENOUS
     Route: 048
  22. METHOTREXATE SODIUM [Concomitant]
     Active Substance: METHOTREXATE SODIUM
     Route: 065

REACTIONS (18)
  - Arthralgia [Not Recovered/Not Resolved]
  - Cardiac sarcoidosis [Not Recovered/Not Resolved]
  - Condition aggravated [Not Recovered/Not Resolved]
  - Diarrhoea [Not Recovered/Not Resolved]
  - Infusion related reaction [Not Recovered/Not Resolved]
  - Malaise [Not Recovered/Not Resolved]
  - Oedema [Not Recovered/Not Resolved]
  - Off label use [Unknown]
  - Pyrexia [Not Recovered/Not Resolved]
  - Restless legs syndrome [Not Recovered/Not Resolved]
  - Tachypnoea [Not Recovered/Not Resolved]
  - Therapy partial responder [Not Recovered/Not Resolved]
  - Ventricular extrasystoles [Not Recovered/Not Resolved]
  - Ventricular tachycardia [Not Recovered/Not Resolved]
  - Weight increased [Not Recovered/Not Resolved]
  - Wound [Not Recovered/Not Resolved]
  - Chest pain [Not Recovered/Not Resolved]
  - Tachycardia [Not Recovered/Not Resolved]
